FAERS Safety Report 6952616-6 (Version None)
Quarter: 2010Q3

REPORT INFORMATION
  Report Type: 
  Country: None (occurrence: None)
  Receive Date: 20100829
  Receipt Date: 20100510
  Transmission Date: 20110219
  Serious: No
  Sender: FDA-Public Use
  Company Number: US-ABBOTT-10P-163-0643794-00

PATIENT
  Sex: Female
  Weight: 70.37 kg

DRUGS (8)
  1. NIASPAN [Suspect]
     Indication: BLOOD CHOLESTEROL INCREASED
     Dates: start: 20100118
  2. NIASPAN [Suspect]
     Dates: start: 20100419
  3. ACTOS [Concomitant]
     Indication: DIABETES MELLITUS
  4. ZETIA [Concomitant]
     Indication: BLOOD CHOLESTEROL INCREASED
  5. AMARYL [Concomitant]
     Indication: DIABETES MELLITUS
  6. NABUMETONE [Concomitant]
     Indication: MUSCLE DISORDER
  7. FISH OIL [Concomitant]
     Indication: MEDICAL DIET
  8. CLONAZEPAM [Concomitant]
     Indication: STRESS

REACTIONS (6)
  - ARTHRALGIA [None]
  - BLOOD GLUCOSE INCREASED [None]
  - FLUSHING [None]
  - INSOMNIA [None]
  - NAUSEA [None]
  - RASH [None]
